FAERS Safety Report 4767100-8 (Version None)
Quarter: 2005Q3

REPORT INFORMATION
  Report Type: 
  Country: None (occurrence: None)
  Receive Date: 20050906
  Receipt Date: 20050707
  Transmission Date: 20060218
  Serious: No
  Sender: FDA-Public Use
  Company Number: 2005-BP-11434BP

PATIENT
  Age: 89 Year
  Sex: Female

DRUGS (3)
  1. SPIRIVA [Suspect]
     Indication: TOTAL LUNG CAPACITY DECREASED
     Dosage: 18 MCG (18 MCG, QD), IH
     Route: 055
     Dates: start: 20050312
  2. ADVAIR DISKUS 100/50 [Concomitant]
  3. DEMEDEX [Concomitant]

REACTIONS (1)
  - VISION BLURRED [None]
